FAERS Safety Report 16118559 (Version 1)
Quarter: 2019Q1

REPORT INFORMATION
  Report Type: Spontaneous
  Country: DE (occurrence: DE)
  Receive Date: 20190326
  Receipt Date: 20190326
  Transmission Date: 20190418
  Serious: No
  Sender: FDA-Public Use
  Company Number: DE-ELI_LILLY_AND_COMPANY-DE201903011435

PATIENT
  Sex: Male

DRUGS (1)
  1. CIALIS [Suspect]
     Active Substance: TADALAFIL
     Indication: ERECTILE DYSFUNCTION
     Dosage: 20 MG, UNKNOWN

REACTIONS (8)
  - Constipation [Unknown]
  - Vision blurred [Unknown]
  - Sciatica [Unknown]
  - Ocular hyperaemia [Unknown]
  - Headache [Unknown]
  - Drug intolerance [Unknown]
  - Nasal dryness [Unknown]
  - Eye pain [Unknown]
